FAERS Safety Report 4654812-X (Version None)
Quarter: 2005Q2

REPORT INFORMATION
  Report Type: 
  Country: None (occurrence: None)
  Receive Date: 20050505
  Receipt Date: 20050420
  Transmission Date: 20051028
  Serious: Yes (Death)
  Sender: FDA-Public Use
  Company Number: 05-04-0734

PATIENT
  Sex: Male

DRUGS (12)
  1. ALBUTEROL SULFATE [Suspect]
  2. SPIRIVA [Suspect]
     Dosage: 18 MCG
  3. COMBIVENT [Suspect]
  4. LOSARTAN POTASSIUM [Suspect]
  5. MOMETASONE FUROATE [Suspect]
  6. NYSTATIN [Suspect]
  7. OXYGEN [Suspect]
  8. PHOLCODINE TAB [Suspect]
  9. SERETIDE [Suspect]
  10. XALATAN [Suspect]
  11. ZOPICLONE [Suspect]
  12. CITALOPRAM HYDROBROMIDE [Suspect]

REACTIONS (1)
  - CHRONIC OBSTRUCTIVE AIRWAYS DISEASE EXACERBATED [None]
